FAERS Safety Report 6236866-2 (Version None)
Quarter: 2009Q2

REPORT INFORMATION
  Report Type: 
  Country: None (occurrence: None)
  Receive Date: 20090619
  Receipt Date: 20090612
  Transmission Date: 20091009
  Serious: Yes (Other)
  Sender: FDA-Public Use
  Company Number: US-JNJFOC-20090605204

PATIENT
  Sex: Male
  Weight: 78.47 kg

DRUGS (4)
  1. DURAGESIC-100 [Suspect]
     Indication: BACK PAIN
     Route: 062
  2. VIRACEPT [Concomitant]
     Indication: HIV INFECTION
     Route: 048
  3. COMBIVIR [Concomitant]
     Indication: HIV INFECTION
     Route: 048
  4. VITAMINS (NOS) [Concomitant]
     Indication: VITAMIN SUPPLEMENTATION
     Route: 048

REACTIONS (3)
  - APPLICATION SITE RASH [None]
  - ARTHRITIS [None]
  - NEUROPATHY PERIPHERAL [None]
